FAERS Safety Report 25729002 (Version 1)
Quarter: 2025Q3

REPORT INFORMATION
  Report Type: Report from Study
  Country: BR (occurrence: BR)
  Receive Date: 20250827
  Receipt Date: 20250827
  Transmission Date: 20251021
  Serious: Yes (Death, Life-Threatening, Other)
  Sender: ABBVIE
  Company Number: BR-JNJFOC-20250822094

PATIENT

DRUGS (2)
  1. IMBRUVICA [Suspect]
     Active Substance: IBRUTINIB
     Indication: Mantle cell lymphoma
     Route: 048
  2. IMBRUVICA [Suspect]
     Active Substance: IBRUTINIB
     Indication: Mantle cell lymphoma
     Route: 048

REACTIONS (20)
  - Sepsis [Fatal]
  - Fatigue [Unknown]
  - Thrombocytopenia [Unknown]
  - Dyspnoea [Unknown]
  - Gastric neoplasm [Unknown]
  - Abdominal hernia [Unknown]
  - Productive cough [Unknown]
  - Febrile neutropenia [Unknown]
  - Leukocytosis [Unknown]
  - Appendicitis [Unknown]
  - Influenza [Unknown]
  - Retroperitoneal abscess [Unknown]
  - Pneumonia [Fatal]
  - Anaemia [Unknown]
  - Neutropenia [Unknown]
  - Tuberculosis [Unknown]
  - Intestinal haemorrhage [Unknown]
  - Diarrhoea [Unknown]
  - Renal failure [Unknown]
  - Infection [Unknown]
